FAERS Safety Report 9044073 (Version 1)
Quarter: 2013Q1

REPORT INFORMATION
  Report Type: Spontaneous
  Country: US (occurrence: US)
  Receive Date: 20130130
  Receipt Date: 20130130
  Transmission Date: 20140127
  Serious: Yes (Hospitalization)
  Sender: FDA-Public Use
  Company Number: US-SANOFI-AVENTIS-2013SA005260

PATIENT
  Age: 82 Year
  Sex: Female

DRUGS (3)
  1. LANTUS SOLOSTAR [Suspect]
     Dosage: DOSE:14 UNIT(S)
     Route: 058
  2. SOLOSTAR [Suspect]
  3. METFORMIN [Suspect]
     Route: 065

REACTIONS (1)
  - Hip fracture [Recovering/Resolving]
